FAERS Safety Report 18432313 (Version 1)
Quarter: 2020Q4

REPORT INFORMATION
  Report Type: Spontaneous
  Country: US (occurrence: US)
  Receive Date: 20201027
  Receipt Date: 20201027
  Transmission Date: 20210114
  Serious: Yes (Other)
  Sender: FDA-Public Use
  Company Number: US-FRESENIUS KABI-FK202011269

PATIENT
  Age: 44 Year
  Sex: Male

DRUGS (1)
  1. AZITHROMYCIN (MANUFACTURER UNKNOWN) [Suspect]
     Active Substance: AZITHROMYCIN ANHYDROUS
     Indication: PNEUMONIA
     Dosage: UNKNOWN
     Route: 065

REACTIONS (2)
  - Diaphragmatic paralysis [Recovered/Resolved]
  - Condition aggravated [Recovered/Resolved]
